FAERS Safety Report 8138009-7 (Version None)
Quarter: 2012Q1

REPORT INFORMATION
  Report Type: 
  Country: None (occurrence: None)
  Receive Date: 20120215
  Receipt Date: 20120208
  Transmission Date: 20120608
  Serious: Yes (Hospitalization)
  Sender: FDA-Public Use
  Company Number: US-PFIZER INC-2012036158

PATIENT
  Sex: Female
  Weight: 69.8 kg

DRUGS (10)
  1. ENZASTAURIN [Suspect]
     Indication: DIFFUSE LARGE B-CELL LYMPHOMA
     Dosage: 1125 MG, DAY 2 CYCLE 1
     Route: 048
     Dates: start: 20090320, end: 20090320
  2. RITUXIMAB [Suspect]
     Indication: DIFFUSE LARGE B-CELL LYMPHOMA
     Dosage: 375 MG/M2, DAY 1 EVERY 21 DAYS
     Route: 042
     Dates: start: 20090320, end: 20090710
  3. PREDNISONE TAB [Suspect]
     Indication: DIFFUSE LARGE B-CELL LYMPHOMA
     Dosage: 100 MG, DAYS 1-5 EVERY 21 DAYS
     Route: 048
     Dates: start: 20090320, end: 20090710
  4. LISINOPRIL [Concomitant]
     Indication: HYPERTENSION
     Dosage: UNK
     Dates: start: 20090303
  5. CYCLOPHOSPHAMIDE [Suspect]
     Indication: DIFFUSE LARGE B-CELL LYMPHOMA
     Dosage: 750 MG/M2, DAY 1 EVERY 21 DAYS
     Route: 042
     Dates: start: 20090320, end: 20090710
  6. LEVOTHYROXINE [Concomitant]
     Indication: HYPOTHYROIDISM
     Dosage: UNK
     Dates: start: 20090303
  7. SIMVASTATIN [Concomitant]
     Indication: HYPERLIPIDAEMIA
     Dosage: UNK
     Dates: start: 20090303
  8. DOXORUBICIN HCL [Suspect]
     Indication: DIFFUSE LARGE B-CELL LYMPHOMA
     Dosage: 50 MG/M2, DAY 1 EVERY 21 DAYS
     Route: 042
     Dates: start: 20090320, end: 20090710
  9. ENZASTAURINE [Suspect]
     Dosage: 500 MG, 1X/DAY
     Route: 048
     Dates: start: 20090301
  10. VINCRISTINE SULFATE [Suspect]
     Indication: DIFFUSE LARGE B-CELL LYMPHOMA
     Dosage: 1.4 MG/M2, DAY ONE EVERY 21 DAYS
     Route: 042
     Dates: start: 20090320, end: 20090710

REACTIONS (2)
  - FALL [None]
  - FEMORAL NECK FRACTURE [None]
